FAERS Safety Report 17572240 (Version 2)
Quarter: 2020Q4

REPORT INFORMATION
  Report Type: Spontaneous
  Country: US (occurrence: US)
  Receive Date: 20200323
  Receipt Date: 20201222
  Transmission Date: 20210113
  Serious: Yes (Other)
  Sender: FDA-Public Use
  Company Number: US-GILEAD-2020-0455887

PATIENT
  Sex: Male
  Weight: 79.37 kg

DRUGS (84)
  1. ISENTRESS [Concomitant]
     Active Substance: RALTEGRAVIR POTASSIUM
  2. PREZCOBIX [Concomitant]
     Active Substance: COBICISTAT\DARUNAVIR ETHANOLATE
  3. REYATAZ [Concomitant]
     Active Substance: ATAZANAVIR SULFATE
  4. SUSTIVA [Concomitant]
     Active Substance: EFAVIRENZ
  5. VIRACEPT [Concomitant]
     Active Substance: NELFINAVIR MESYLATE
  6. AZITHROMYCIN ANHYDROUS. [Concomitant]
     Active Substance: AZITHROMYCIN ANHYDROUS
  7. CYANOCOBALAMIN. [Concomitant]
     Active Substance: CYANOCOBALAMIN
  8. LORAZEPAM. [Concomitant]
     Active Substance: LORAZEPAM
  9. MICONAZOLE NITRATE. [Concomitant]
     Active Substance: MICONAZOLE NITRATE
  10. ROCEPHIN [Concomitant]
     Active Substance: CEFTRIAXONE SODIUM
  11. TINIDAZOLE. [Concomitant]
     Active Substance: TINIDAZOLE
  12. VIREAD [Suspect]
     Active Substance: TENOFOVIR DISOPROXIL FUMARATE
     Dosage: UNK
     Route: 048
     Dates: start: 20080221, end: 20080421
  13. COMBIVIR [Concomitant]
     Active Substance: LAMIVUDINE\ZIDOVUDINE
  14. RESCRIPTOR [Concomitant]
     Active Substance: DELAVIRDINE MESYLATE
  15. BICILLIN L-A [Concomitant]
     Active Substance: PENICILLIN G BENZATHINE
  16. DIPHENOXYLATE/ATROPINE [Concomitant]
     Active Substance: ATROPINE\DIPHENOXYLATE
  17. OLANZAPINE. [Concomitant]
     Active Substance: OLANZAPINE
  18. ZYPREXA [Concomitant]
     Active Substance: OLANZAPINE
  19. EDURANT [Concomitant]
     Active Substance: RILPIVIRINE HYDROCHLORIDE
  20. EPIVIR [Concomitant]
     Active Substance: LAMIVUDINE
  21. KALETRA [Concomitant]
     Active Substance: LOPINAVIR\RITONAVIR
  22. TIVICAY [Concomitant]
     Active Substance: DOLUTEGRAVIR SODIUM
  23. GUAIFENESIN + CODEINE [Concomitant]
  24. DIFLUCAN [Concomitant]
     Active Substance: FLUCONAZOLE
  25. HYDROCODONE [Concomitant]
     Active Substance: HYDROCODONE
  26. IBUPROFEN. [Concomitant]
     Active Substance: IBUPROFEN
  27. GABAPENTIN. [Concomitant]
     Active Substance: GABAPENTIN
  28. BACTRIM [Concomitant]
     Active Substance: SULFAMETHOXAZOLE\TRIMETHOPRIM
  29. VARENICLINE [Concomitant]
     Active Substance: VARENICLINE
  30. ABILIFY [Concomitant]
     Active Substance: ARIPIPRAZOLE
  31. ACYCLOVIR [ACICLOVIR] [Concomitant]
     Active Substance: ACYCLOVIR
  32. AMIDRINE [Concomitant]
  33. ERGOCALCIFEROL. [Concomitant]
     Active Substance: ERGOCALCIFEROL
  34. MUPIROCIN. [Concomitant]
     Active Substance: MUPIROCIN
  35. OXYCODONE [Concomitant]
     Active Substance: OXYCODONE
  36. RISPERIDONE. [Concomitant]
     Active Substance: RISPERIDONE
  37. STRIBILD [Suspect]
     Active Substance: COBICISTAT\ELVITEGRAVIR\EMTRICITABINE\TENOFOVIR DISOPROXIL FUMARATE
     Indication: HIV INFECTION
     Dosage: UNK
     Route: 048
     Dates: start: 201708, end: 201811
  38. ZIAGEN [Concomitant]
     Active Substance: ABACAVIR SULFATE
  39. CIPROFLOXACIN. [Concomitant]
     Active Substance: CIPROFLOXACIN
  40. DRONABINOL. [Concomitant]
     Active Substance: DRONABINOL
  41. LAMICTAL [Concomitant]
     Active Substance: LAMOTRIGINE
  42. LEVOTHYROXINE SODIUM. [Concomitant]
     Active Substance: LEVOTHYROXINE SODIUM
  43. METHYLPREDNISOLONE. [Concomitant]
     Active Substance: METHYLPREDNISOLONE
  44. PENICILLIN G BENZATHINE [Concomitant]
     Active Substance: PENICILLIN G BENZATHINE
  45. PRILOSEC [Concomitant]
     Active Substance: OMEPRAZOLE MAGNESIUM
  46. RISPERDAL [Concomitant]
     Active Substance: RISPERIDONE
  47. TRAMADOL. [Concomitant]
     Active Substance: TRAMADOL
  48. VIREAD [Suspect]
     Active Substance: TENOFOVIR DISOPROXIL FUMARATE
     Indication: HIV INFECTION
     Dosage: UNK
     Route: 048
     Dates: start: 200206, end: 20021125
  49. NORVIR [Concomitant]
     Active Substance: RITONAVIR
  50. RETROVIR [Concomitant]
     Active Substance: ZIDOVUDINE
  51. VIRAMUNE [Concomitant]
     Active Substance: NEVIRAPINE
  52. ZERIT [Concomitant]
     Active Substance: STAVUDINE
  53. AMOXICILLIN. [Concomitant]
     Active Substance: AMOXICILLIN
  54. CALCIUM + VITAMIN D [CALCIUM CARBONATE;COLECALCIFEROL] [Concomitant]
     Active Substance: CALCIUM CARBONATE\CHOLECALCIFEROL
  55. CYCLOBENZAPRINE HCL [Concomitant]
     Active Substance: CYCLOBENZAPRINE HYDROCHLORIDE
  56. DOCQLACE [Concomitant]
     Active Substance: DOCUSATE SODIUM
  57. DOXYCYCLINE HYCLATE. [Concomitant]
     Active Substance: DOXYCYCLINE HYCLATE
  58. MARINOL [ALLOPURINOL] [Concomitant]
     Active Substance: ALLOPURINOL
  59. METOCLOPRAMIDE. [Concomitant]
     Active Substance: METOCLOPRAMIDE
  60. OMEPRAZOLE. [Concomitant]
     Active Substance: OMEPRAZOLE
  61. POLYETHYLENE [Concomitant]
     Active Substance: HIGH DENSITY POLYETHYLENE
  62. GANTANOL [Concomitant]
     Active Substance: SULFAMETHOXAZOLE
  63. VIDEX [Concomitant]
     Active Substance: DIDANOSINE
  64. BENZONATATE. [Concomitant]
     Active Substance: BENZONATATE
  65. CLINDAMYCIN. [Concomitant]
     Active Substance: CLINDAMYCIN
  66. DOCUSATE SODIUM. [Concomitant]
     Active Substance: DOCUSATE SODIUM
  67. MELATONIN [Concomitant]
     Active Substance: MELATONIN
  68. PRENATAL PLUS [Concomitant]
     Active Substance: .ALPHA.-TOCOPHEROL ACETATE, DL-\.BETA.-CAROTENE\ASCORBIC ACID\CALCIUM CARBONATE\CHOLECALCIFEROL\CUPRIC OXIDE\CYANOCOBALAMIN\FERROUS FUMARATE\FOLIC ACID\NIACINAMIDE\PYRIDOXINE HYDROCHLORIDE\RIBOFLAVIN\THIAMINE MONONITRATE\VITAMIN A ACETATE\ZINC OXIDE
  69. ZITHROMAX [Concomitant]
     Active Substance: AZITHROMYCIN DIHYDRATE
  70. AMITRIPTYLINE HCL [Concomitant]
     Active Substance: AMITRIPTYLINE
  71. BISACODYL. [Concomitant]
     Active Substance: BISACODYL
  72. CEFTRIAXONE. [Concomitant]
     Active Substance: CEFTRIAXONE
  73. CLONIDINE. [Concomitant]
     Active Substance: CLONIDINE
  74. FLUCONAZOLE. [Concomitant]
     Active Substance: FLUCONAZOLE
  75. INVEGA [Concomitant]
     Active Substance: PALIPERIDONE
  76. LEVOXYL [Concomitant]
     Active Substance: LEVOTHYROXINE SODIUM
  77. NORTRIPTYLINE HCL [Concomitant]
     Active Substance: NORTRIPTYLINE HYDROCHLORIDE
  78. PROCHLORPERAZINE. [Concomitant]
     Active Substance: PROCHLORPERAZINE
  79. SEROQUEL [Concomitant]
     Active Substance: QUETIAPINE FUMARATE
  80. TEMAZEPAM. [Concomitant]
     Active Substance: TEMAZEPAM
  81. VALACYCLOVIR HCL [Concomitant]
     Active Substance: VALACYCLOVIR HYDROCHLORIDE
  82. VALERIAN ROOT EXTRACT [Concomitant]
  83. VITAMIN B COMPLEX [Concomitant]
     Active Substance: CYANOCOBALAMIN\DEXPANTHENOL\NIACINAMIDE\PYRIDOXINE HYDROCHLORIDE\RIBOFLAVIN 5^-PHOSPHATE SODIUM\THIAMINE HYDROCHLORIDE\VITAMIN B COMPLEX
  84. VITAMIN D3 [Concomitant]
     Active Substance: CHOLECALCIFEROL

REACTIONS (14)
  - Bone density decreased [Not Recovered/Not Resolved]
  - Emotional distress [Not Recovered/Not Resolved]
  - Anhedonia [Not Recovered/Not Resolved]
  - Depression [Not Recovered/Not Resolved]
  - Anxiety [Not Recovered/Not Resolved]
  - Back pain [Unknown]
  - Foot fracture [Unknown]
  - Osteopenia [Not Recovered/Not Resolved]
  - Sciatica [Unknown]
  - Loss of personal independence in daily activities [Unknown]
  - Economic problem [Not Recovered/Not Resolved]
  - Pain [Not Recovered/Not Resolved]
  - Osteoporosis [Not Recovered/Not Resolved]
  - Arthralgia [Unknown]

NARRATIVE: CASE EVENT DATE: 2004
